FAERS Safety Report 6611796-2 (Version None)
Quarter: 2010Q1

REPORT INFORMATION
  Report Type: 
  Country: None (occurrence: None)
  Receive Date: 20100303
  Receipt Date: 20100226
  Transmission Date: 20100710
  Serious: Yes (Death)
  Sender: FDA-Public Use
  Company Number: CA-ROCHE-683525

PATIENT
  Sex: Male
  Weight: 82 kg

DRUGS (2)
  1. XELODA [Suspect]
     Indication: COLON CANCER
     Route: 048
     Dates: start: 20100118, end: 20100130
  2. ALTACE [Concomitant]
     Indication: HYPERTENSION

REACTIONS (2)
  - CARDIAC ARREST [None]
  - NAUSEA [None]
